FAERS Safety Report 4561747-X (Version None)
Quarter: 2005Q1

REPORT INFORMATION
  Report Type: 
  Country: None (occurrence: None)
  Receive Date: 20050125
  Receipt Date: 20041103
  Transmission Date: 20050727
  Serious: Yes (Other)
  Sender: FDA-Public Use
  Company Number: 2004241498US

PATIENT
  Age: 18 Year
  Sex: Female
  Weight: 66.6788 kg

DRUGS (3)
  1. DEPO-PROVERA [Suspect]
     Indication: CONTRACEPTION
     Dosage: 150 MG (150 MG, 1ST INJECTION), INTRAMUSCULAR
     Route: 030
     Dates: start: 20041006, end: 20041006
  2. FEXOFENADINE HYDROCHLORIDE (FEFXOFENADINE HYDROCHLORIDE) [Concomitant]
  3. RANITIDINE HYDROCHLORIDE [Concomitant]

REACTIONS (4)
  - ERYTHEMA [None]
  - FOOD ALLERGY [None]
  - JOINT SWELLING [None]
  - URTICARIA [None]
